FAERS Safety Report 7878651-1 (Version None)
Quarter: 2011Q4

REPORT INFORMATION
  Report Type: 
  Country: None (occurrence: None)
  Receive Date: 20111028
  Receipt Date: 20111019
  Transmission Date: 20120403
  Serious: Yes (Hospitalization, Other)
  Sender: FDA-Public Use
  Company Number: ACO_27379_2011

PATIENT
  Age: 51 Year
  Sex: Female

DRUGS (5)
  1. XANAX [Concomitant]
  2. TYSABRI [Concomitant]
  3. PRISTIQ [Concomitant]
  4. AMPYRA [Suspect]
     Indication: GAIT DISTURBANCE
     Dosage: 10 MG, Q 12 HRS
     Dates: start: 20101018
  5. HYDROCODONE BITARTRATE [Concomitant]

REACTIONS (4)
  - BLOOD POTASSIUM DECREASED [None]
  - PNEUMONIA [None]
  - HEADACHE [None]
  - PALPITATIONS [None]
